FAERS Safety Report 6422108-1 (Version None)
Quarter: 2009Q4

REPORT INFORMATION
  Report Type: 
  Country: None (occurrence: None)
  Receive Date: 20091030
  Receipt Date: 20091018
  Transmission Date: 20100525
  Serious: Yes (Other)
  Sender: FDA-Public Use
  Company Number: NL-GENENTECH-292549

PATIENT
  Sex: Female

DRUGS (2)
  1. AVASTIN [Suspect]
     Indication: BREAST CANCER METASTATIC
     Dosage: 10 MG/KG, 1/WEEK
     Route: 042
     Dates: start: 20090323, end: 20090831
  2. TAXOL [Suspect]
     Indication: BREAST CANCER METASTATIC
     Dosage: 80 MG, 1/WEEK
     Route: 042
     Dates: start: 20090323, end: 20090831

REACTIONS (1)
  - VENOUS OCCLUSION [None]
